FAERS Safety Report 18384020 (Version 2)
Quarter: 2020Q4

REPORT INFORMATION
  Report Type: Spontaneous
  Country: US (occurrence: US)
  Receive Date: 20201014
  Receipt Date: 20201029
  Transmission Date: 20210114
  Serious: Yes (Death)
  Sender: FDA-Public Use
  Company Number: US-ABBVIE-20K-163-3608946-00

PATIENT
  Age: 81 Year
  Sex: Female
  Weight: 73.91 kg

DRUGS (1)
  1. IMBRUVICA [Suspect]
     Active Substance: IBRUTINIB
     Indication: WALDENSTROM^S MACROGLOBULINAEMIA
     Route: 048
     Dates: start: 201509, end: 20200430

REACTIONS (1)
  - Death [Fatal]

NARRATIVE: CASE EVENT DATE: 20200611
